FAERS Safety Report 25345600 (Version 7)
Quarter: 2025Q4

REPORT INFORMATION
  Report Type: Report from Study
  Country: CO (occurrence: CO)
  Receive Date: 20250522
  Receipt Date: 20251010
  Transmission Date: 20260117
  Serious: Yes (Hospitalization, Other)
  Sender: AMGEN
  Company Number: CO-AMGEN-COLSL2024214244

PATIENT
  Age: 67 Year
  Sex: Female

DRUGS (4)
  1. VECTIBIX [Suspect]
     Active Substance: PANITUMUMAB
     Indication: Colorectal cancer metastatic
     Dosage: 342 MILLIGRAM, Q2WK
     Route: 040
     Dates: start: 20240821
  2. VECTIBIX [Suspect]
     Active Substance: PANITUMUMAB
     Dosage: 342 MILLIGRAM, Q2WK
     Route: 040
     Dates: start: 20250331
  3. VECTIBIX [Suspect]
     Active Substance: PANITUMUMAB
     Dosage: 260 MILLIGRAM, Q2WK
     Route: 040
     Dates: start: 20250625
  4. VECTIBIX [Suspect]
     Active Substance: PANITUMUMAB
     Dosage: 205 MILLIGRAM, Q2WK
     Route: 040
     Dates: start: 2025

REACTIONS (14)
  - Skin burning sensation [Not Recovered/Not Resolved]
  - Pain in extremity [Not Recovered/Not Resolved]
  - Oedema peripheral [Not Recovered/Not Resolved]
  - Skin toxicity [Not Recovered/Not Resolved]
  - Rash [Not Recovered/Not Resolved]
  - Ureteral catheterisation [Recovering/Resolving]
  - Face oedema [Not Recovered/Not Resolved]
  - Facial pain [Not Recovered/Not Resolved]
  - Oral disorder [Not Recovered/Not Resolved]
  - Dry skin [Not Recovered/Not Resolved]
  - Pruritus [Not Recovered/Not Resolved]
  - Erythema [Not Recovered/Not Resolved]
  - Skin exfoliation [Not Recovered/Not Resolved]
  - Herpes zoster [Not Recovered/Not Resolved]

NARRATIVE: CASE EVENT DATE: 20240101
